FAERS Safety Report 19228888 (Version 1)
Quarter: 2021Q2

REPORT INFORMATION
  Report Type: Spontaneous
  Country: US (occurrence: US)
  Receive Date: 20210506
  Receipt Date: 20210506
  Transmission Date: 20210717
  Serious: No
  Sender: FDA-Public Use
  Company Number: US-ROCHE-2775187

PATIENT
  Age: 73 Year
  Sex: Male
  Weight: 99.88 kg

DRUGS (3)
  1. ESBRIET [Suspect]
     Active Substance: PIRFENIDONE
     Indication: IDIOPATHIC PULMONARY FIBROSIS
     Route: 048
     Dates: start: 20200807
  2. LIDOCAINE. [Concomitant]
     Active Substance: LIDOCAINE
     Indication: ANALGESIC THERAPY
     Dosage: PATCH APPLIED BEFORE BED TO MIDDLE OF BACK AND HIP
  3. HYDROCODONE [Concomitant]
     Active Substance: HYDROCODONE

REACTIONS (3)
  - Weight decreased [Not Recovered/Not Resolved]
  - Product administration error [Unknown]
  - Nausea [Unknown]

NARRATIVE: CASE EVENT DATE: 202101
